FAERS Safety Report 7889140-2 (Version None)
Quarter: 2011Q4

REPORT INFORMATION
  Report Type: 
  Country: None (occurrence: None)
  Receive Date: 20111103
  Receipt Date: 20111028
  Transmission Date: 20120403
  Serious: Yes (Life-Threatening, Hospitalization)
  Sender: FDA-Public Use
  Company Number: FR-BRISTOL-MYERS SQUIBB COMPANY-15893639

PATIENT
  Age: 66 Year
  Sex: Female
  Weight: 97 kg

DRUGS (5)
  1. GLUCOPHAGE [Suspect]
     Indication: TYPE 2 DIABETES MELLITUS
     Dosage: STARTED MORE 4 YRS
     Route: 048
     Dates: end: 20110530
  2. MICARDIS HCT [Concomitant]
     Indication: HYPERTENSION
     Dosage: STARTED MORE 6 MONTHS MICARDIS PLUS 80MG/12.5MG TABS
     Route: 048
  3. AMARYL [Suspect]
     Indication: TYPE 2 DIABETES MELLITUS
     Dosage: STARTED MORE 6 MONTHS
     Route: 048
     Dates: end: 20110531
  4. JANUVIA [Suspect]
     Indication: TYPE 2 DIABETES MELLITUS
     Dosage: JANUVIA 100MG TABLET
     Route: 048
     Dates: start: 20110430, end: 20110530
  5. LANTUS [Concomitant]
     Indication: TYPE 2 DIABETES MELLITUS
     Dosage: STARTED MORE 6 MONTHS LANTUS SOLN FOR INJ
     Route: 058

REACTIONS (1)
  - DRUG RASH WITH EOSINOPHILIA AND SYSTEMIC SYMPTOMS [None]
